FAERS Safety Report 8612239-X (Version None)
Quarter: 2012Q3

REPORT INFORMATION
  Report Type: 
  Country: None (occurrence: None)
  Receive Date: 20120822
  Receipt Date: 20120814
  Transmission Date: 20120928
  Serious: Yes (Hospitalization)
  Sender: FDA-Public Use
  Company Number: US-BAYER-2012-038714

PATIENT
  Age: 42 Year
  Sex: Female
  Weight: 61 kg

DRUGS (5)
  1. NAPROSYN [Concomitant]
     Dosage: 1000 MG EVERY 4 HOURS
  2. YAZ [Suspect]
     Indication: PREMENSTRUAL SYNDROME
     Dosage: UNK
     Dates: start: 20061225, end: 20070206
  3. CYMBALTA [Concomitant]
     Route: 048
  4. TYLENOL [Concomitant]
     Indication: HEADACHE
     Dosage: 500 MG, UNK
     Route: 048
  5. INDOCIN [Concomitant]
     Indication: PLEURISY

REACTIONS (6)
  - PULMONARY FUNCTION TEST DECREASED [None]
  - INFECTION [None]
  - PULMONARY EMBOLISM [None]
  - PAIN [None]
  - INJURY [None]
  - ASTHMA [None]
